FAERS Safety Report 9169293 (Version 3)
Quarter: 2014Q4

REPORT INFORMATION
  Report Type: Spontaneous
  Country: US (occurrence: US)
  Receive Date: 20130318
  Receipt Date: 20141124
  Transmission Date: 20150529
  Serious: Yes (Life-Threatening, Hospitalization, Disabling)
  Sender: FDA-Public Use
  Company Number: US-BAYER-2013-031452

PATIENT
  Age: 53 Year
  Sex: Female
  Weight: 90 kg

DRUGS (7)
  1. GIANVI [Suspect]
     Active Substance: DROSPIRENONE\ETHINYL ESTRADIOL
     Indication: MENOPAUSE
  2. GIANVI [Suspect]
     Active Substance: DROSPIRENONE\ETHINYL ESTRADIOL
     Indication: PREMENSTRUAL DYSPHORIC DISORDER
     Dosage: UNK
     Route: 048
     Dates: start: 2009, end: 201108
  3. CYCLOBENZAPRINE [Concomitant]
     Active Substance: CYCLOBENZAPRINE
     Dosage: 5 MG, TID
     Route: 048
  4. IBUPROFEN [IBUPROFEN] [Concomitant]
     Active Substance: IBUPROFEN
     Dosage: 600 MG, TID
     Route: 048
  5. OXYCONTIN [Concomitant]
     Active Substance: OXYCODONE HYDROCHLORIDE
     Indication: PAIN MANAGEMENT
  6. OXYCODONE [Concomitant]
     Active Substance: OXYCODONE
     Dosage: 5 MG, 2 TABLETS EVERY 6 HR AS NEEDED
     Route: 048
  7. MOTRIN [Concomitant]
     Active Substance: IBUPROFEN

REACTIONS (7)
  - Dyspnoea exertional [None]
  - Chest discomfort [None]
  - Back pain [None]
  - Pulmonary embolism [None]
  - Hypertension [None]
  - Product use issue [None]
  - Injury [None]

NARRATIVE: CASE EVENT DATE: 20110902
